FAERS Safety Report 24662436 (Version 1)
Quarter: 2024Q4

REPORT INFORMATION
  Report Type: Spontaneous
  Country: US (occurrence: US)
  Receive Date: 20241125
  Receipt Date: 20241125
  Transmission Date: 20250115
  Serious: Yes (Hospitalization, Other)
  Sender: CIPLA
  Company Number: US-CIPLA LTD.-2024US09110

PATIENT

DRUGS (3)
  1. CARBOPLATIN [Suspect]
     Active Substance: CARBOPLATIN
     Indication: Malignant melanoma stage II
     Dosage: AREA UNDER THE CURVE OF 5 ADMINISTERED ON DAY 1 OF EACH 21 DAY CYCLE
     Dates: start: 201104
  2. PACLITAXEL [Suspect]
     Active Substance: PACLITAXEL
     Indication: Malignant melanoma stage II
     Dosage: 175 MG/M2 ADMINISTERED ON DAY 1 OF EACH 21 DAY CYCLE
     Route: 065
     Dates: start: 201104
  3. PACLITAXEL [Suspect]
     Active Substance: PACLITAXEL
     Dosage: SINGLE AGENT WEEKLY
     Route: 065

REACTIONS (1)
  - Angina unstable [Recovered/Resolved]
